FAERS Safety Report 5385063-1 (Version None)
Quarter: 2007Q3

REPORT INFORMATION
  Report Type: 
  Country: None (occurrence: None)
  Receive Date: 20070710
  Receipt Date: 20070710
  Transmission Date: 20080115
  Serious: Yes (Hospitalization)
  Sender: FDA-Public Use
  Company Number: None

PATIENT
  Age: 81 Year
  Sex: Male
  Weight: 65.7716 kg

DRUGS (9)
  1. DOCETAXEL [Suspect]
     Indication: NEOPLASM MALIGNANT
     Dosage: IV D1, 110MG
     Route: 042
     Dates: start: 20070702
  2. OXALIPLATIN [Suspect]
     Indication: NEOPLASM MALIGNANT
     Dosage: IV, D1 240MG
     Dates: start: 20070702
  3. ASPIRIN [Concomitant]
  4. ATENOLOL [Concomitant]
  5. CITALOPRAM HYDROBROMIDE [Concomitant]
  6. TRIAMTERENE AND HYDROCHLOROTHIAZIDE [Concomitant]
  7. NITROGLYCERIN [Concomitant]
  8. RANITIDINE [Concomitant]
  9. SIMVASTATIN [Concomitant]

REACTIONS (2)
  - DEHYDRATION [None]
  - VOMITING [None]
